FAERS Safety Report 15761886 (Version 1)
Quarter: 2018Q4

REPORT INFORMATION
  Report Type: Spontaneous
  Country: US (occurrence: US)
  Receive Date: 20181226
  Receipt Date: 20181226
  Transmission Date: 20190205
  Serious: No
  Sender: FDA-Public Use
  Company Number: US-LUNDBECK-DKLU2058583

PATIENT
  Sex: Female

DRUGS (1)
  1. SABRIL [Suspect]
     Active Substance: VIGABATRIN
     Indication: INFANTILE SPASMS
     Route: 048
     Dates: start: 2012

REACTIONS (5)
  - Misophonia [Unknown]
  - Autophobia [Unknown]
  - Feeling abnormal [Unknown]
  - Condition aggravated [Unknown]
  - Memory impairment [Unknown]
